FAERS Safety Report 8124283-X (Version None)
Quarter: 2012Q1

REPORT INFORMATION
  Report Type: 
  Country: None (occurrence: None)
  Receive Date: 20120209
  Receipt Date: 20120203
  Transmission Date: 20120608
  Serious: Yes (Other)
  Sender: FDA-Public Use
  Company Number: BR-PFIZER INC-2012031841

PATIENT
  Age: 54 Year
  Sex: Female

DRUGS (3)
  1. CINNARIZINE [Concomitant]
     Indication: LABYRINTHITIS
     Dosage: UNK
     Dates: start: 20070101, end: 20120101
  2. XALATAN [Suspect]
     Indication: GLAUCOMA
     Dosage: 3 UG (ONE DROP IN EACH EYE), 1X/DAY
     Route: 047
     Dates: start: 20090203
  3. GINKGO BILOBA [Concomitant]
     Indication: LABYRINTHITIS
     Dosage: UNK
     Dates: start: 20070101, end: 20120101

REACTIONS (1)
  - DIABETES MELLITUS [None]
